FAERS Safety Report 10277198 (Version 2)
Quarter: 2014Q3

REPORT INFORMATION
  Report Type: Report from Study
  Country: DE (occurrence: DE)
  Receive Date: 20140703
  Receipt Date: 20140814
  Transmission Date: 20150326
  Serious: Yes (Hospitalization)
  Sender: FDA-Public Use
  Company Number: DE-ABBVIE-14P-062-1254389-00

PATIENT
  Sex: Female
  Weight: 83.7 kg

DRUGS (7)
  1. STUDY MEDICATION PF00547659 NOS [Concomitant]
     Indication: PRODUCT USED FOR UNKNOWN INDICATION
     Dates: start: 20130918
  2. HERBAL NOS [Concomitant]
     Active Substance: HERBALS
     Indication: ABDOMINAL PAIN
  3. ESPUMISAN [Concomitant]
     Indication: ABDOMINAL PAIN
  4. PANTOPRAZOLE [Concomitant]
     Active Substance: PANTOPRAZOLE SODIUM
     Indication: ULCER
  5. HUMIRA [Suspect]
     Active Substance: ADALIMUMAB
     Indication: CROHN^S DISEASE
     Route: 058
     Dates: start: 20121211, end: 20121211
  6. HUMIRA [Suspect]
     Active Substance: ADALIMUMAB
     Route: 058
     Dates: start: 20121227, end: 20130310
  7. PANTOPRAZOLE [Concomitant]
     Active Substance: PANTOPRAZOLE SODIUM
     Indication: PROPHYLAXIS
     Dates: start: 20131114

REACTIONS (2)
  - Menorrhagia [Recovered/Resolved]
  - Infection [Unknown]
